FAERS Safety Report 8856397 (Version 2)
Quarter: 2012Q4

REPORT INFORMATION
  Report Type: Spontaneous
  Country: DK (occurrence: None)
  Receive Date: 20121018
  Receipt Date: 20121114
  Transmission Date: 20130627
  Serious: Yes (Other)
  Sender: FDA-Public Use
  Company Number: 2012MA012242

PATIENT
  Age: 75 Year
  Sex: Female

DRUGS (9)
  1. TRAMADOL HYDRCHLORIDE [Suspect]
     Indication: BACK PAIN
     Dates: end: 20120927
  2. ACETYLSALICYLIC ACID [Concomitant]
  3. BENDROFLUMETHIAZIDE [Concomitant]
  4. ISOSORBIDE MONONITRATE [Concomitant]
  5. SIMVASTATIN [Concomitant]
  6. SYMBICORT [Concomitant]
  7. ADIZEM [Concomitant]
  8. MOVICOL [Concomitant]
  9. SENNA PLUS [Concomitant]

REACTIONS (15)
  - Memory impairment [None]
  - Insomnia [None]
  - Retching [None]
  - Constipation [None]
  - Throat irritation [None]
  - Cough [None]
  - Sneezing [None]
  - Fatigue [None]
  - Activities of daily living impaired [None]
  - Asthenia [None]
  - No therapeutic response [None]
  - Malaise [None]
  - Dizziness [None]
  - Confusional state [None]
  - Cognitive disorder [None]
